FAERS Safety Report 20850547 (Version 1)
Quarter: 2022Q2

REPORT INFORMATION
  Report Type: Spontaneous
  Country: US (occurrence: None)
  Receive Date: 20220518
  Receipt Date: 20220518
  Transmission Date: 20220720
  Serious: No
  Sender: FDA-Public Use
  Company Number: None

PATIENT
  Age: 54 Year
  Sex: Male
  Weight: 74.25 kg

DRUGS (4)
  1. PAXLOVID [Suspect]
     Active Substance: NIRMATRELVIR\RITONAVIR
     Indication: COVID-19
     Route: 048
     Dates: start: 20220516, end: 20220517
  2. AMOXICILLIN [Concomitant]
     Active Substance: AMOXICILLIN
  3. TEA [Concomitant]
     Active Substance: TEA LEAF
  4. ASPIRIN [Concomitant]
     Active Substance: ASPIRIN

REACTIONS (8)
  - Incorrect dose administered [None]
  - Dysphonia [None]
  - Chills [None]
  - Palpitations [None]
  - Muscle spasms [None]
  - Loss of consciousness [None]
  - Pallor [None]
  - Fatigue [None]

NARRATIVE: CASE EVENT DATE: 20220517
